FAERS Safety Report 8469455-X (Version None)
Quarter: 2012Q2

REPORT INFORMATION
  Report Type: 
  Country: None (occurrence: None)
  Receive Date: 20120626
  Receipt Date: 20120504
  Transmission Date: 20120825
  Serious: Yes (Other)
  Sender: FDA-Public Use
  Company Number: US-ASTRAZENECA-2012SE28869

PATIENT
  Age: 59 Year
  Sex: Male

DRUGS (1)
  1. CAPRELSA [Suspect]
     Indication: THYROID CANCER
     Route: 048
     Dates: start: 20120415

REACTIONS (1)
  - ELECTROCARDIOGRAM QT PROLONGED [None]
